FAERS Safety Report 16507850 (Version 33)
Quarter: 2021Q4

REPORT INFORMATION
  Report Type: Spontaneous
  Country: BR (occurrence: BR)
  Receive Date: 20190701
  Receipt Date: 20211228
  Transmission Date: 20220303
  Serious: Yes (Hospitalization, Other)
  Sender: FDA-Public Use
  Company Number: BR-GLAXOSMITHKLINE-BR2019GSK041108

PATIENT
  Sex: Female
  Weight: 68 kg

DRUGS (18)
  1. NUCALA [Suspect]
     Active Substance: MEPOLIZUMAB
     Indication: Asthma
     Dosage: 100 MG, Z(MONTHLY)
     Dates: start: 20190227, end: 20190806
  2. ALBUTEROL [Suspect]
     Active Substance: ALBUTEROL
     Indication: Dyspnoea
     Dosage: UNK
  3. ALBUTEROL [Suspect]
     Active Substance: ALBUTEROL
     Indication: Asthmatic crisis
  4. ALBUTEROL [Suspect]
     Active Substance: ALBUTEROL
     Indication: Cough
  5. SERETIDE [Suspect]
     Active Substance: FLUTICASONE PROPIONATE\SALMETEROL XINAFOATE
     Indication: Dyspnoea
     Dosage: UNK
  6. SERETIDE [Suspect]
     Active Substance: FLUTICASONE PROPIONATE\SALMETEROL XINAFOATE
     Indication: Heart rate increased
  7. ALBUTEROL [Suspect]
     Active Substance: ALBUTEROL
     Indication: Product used for unknown indication
     Dosage: UNK
  8. PREDNISOLONE [Suspect]
     Active Substance: PREDNISOLONE
     Indication: Rhinitis
     Dosage: 20 MG
     Route: 055
  9. PREDNISOLONE [Suspect]
     Active Substance: PREDNISOLONE
     Dosage: 40 MG
     Route: 055
  10. PREDNISOLONE [Suspect]
     Active Substance: PREDNISOLONE
     Dosage: 20 MG, BID
     Route: 055
  11. BENLYSTA [Suspect]
     Active Substance: BELIMUMAB
     Indication: Product used for unknown indication
     Dosage: UNK
  12. AZITHROMYCIN [Suspect]
     Active Substance: AZITHROMYCIN
     Indication: Pneumonia
     Dosage: UNK
  13. AZITHROMYCIN [Suspect]
     Active Substance: AZITHROMYCIN
     Indication: Adverse drug reaction
  14. PREDNISONE [Suspect]
     Active Substance: PREDNISONE
     Indication: Fatigue
     Dosage: 5 MG, UNK
     Dates: start: 20190617
  15. PREDNISONE [Suspect]
     Active Substance: PREDNISONE
     Indication: Dyspnoea
     Dosage: 20 MG, BID
  16. PREDNISONE [Suspect]
     Active Substance: PREDNISONE
     Indication: Heart rate increased
  17. CHLORAMPHENICOL\PREDNISOLONE [Suspect]
     Active Substance: CHLORAMPHENICOL\PREDNISOLONE
     Indication: Adverse drug reaction
     Dosage: UNK
  18. OMEPRAZOLE [Concomitant]
     Active Substance: OMEPRAZOLE
     Indication: Gastrooesophageal reflux disease
     Dosage: UNK

REACTIONS (65)
  - Asthma [Not Recovered/Not Resolved]
  - COVID-19 [Recovered/Resolved]
  - Pneumonia viral [Recovered/Resolved]
  - Asthmatic crisis [Unknown]
  - Rectal cancer [Not Recovered/Not Resolved]
  - Pulmonary congestion [Recovered/Resolved]
  - Lung abscess [Recovered/Resolved]
  - Uterine injury [Unknown]
  - Immunosuppression [Not Recovered/Not Resolved]
  - Colorectal cancer [Not Recovered/Not Resolved]
  - Fungal oesophagitis [Not Recovered/Not Resolved]
  - Hepatic cancer [Unknown]
  - Vomiting [Recovered/Resolved]
  - Nausea [Recovered/Resolved]
  - Myalgia [Recovered/Resolved]
  - Headache [Not Recovered/Not Resolved]
  - Allergic respiratory disease [Recovered/Resolved]
  - Rhinitis [Recovered/Resolved]
  - Fatigue [Not Recovered/Not Resolved]
  - Dyspnoea [Not Recovered/Not Resolved]
  - Disease recurrence [Not Recovered/Not Resolved]
  - Oxygen saturation abnormal [Recovered/Resolved]
  - Gastrooesophageal reflux disease [Recovered/Resolved]
  - Wheezing [Not Recovered/Not Resolved]
  - Tremor [Not Recovered/Not Resolved]
  - Heart rate increased [Not Recovered/Not Resolved]
  - Malaise [Recovered/Resolved]
  - Cough [Not Recovered/Not Resolved]
  - Myomectomy [Recovered/Resolved]
  - Procedural complication [Unknown]
  - Pain [Not Recovered/Not Resolved]
  - Pyrexia [Recovered/Resolved]
  - Mite allergy [Unknown]
  - Feeling abnormal [Unknown]
  - Hyperhidrosis [Unknown]
  - Anosmia [Unknown]
  - Ageusia [Unknown]
  - Obstructive airways disorder [Unknown]
  - Nervousness [Unknown]
  - Insomnia [Unknown]
  - Self-medication [Unknown]
  - Suffocation feeling [Unknown]
  - Throat tightness [Unknown]
  - Condition aggravated [Unknown]
  - Leiomyoma [Recovered/Resolved]
  - Polymenorrhoea [Unknown]
  - Loss of personal independence in daily activities [Unknown]
  - Abdominal pain [Not Recovered/Not Resolved]
  - Secretion discharge [Not Recovered/Not Resolved]
  - Rhinalgia [Not Recovered/Not Resolved]
  - Sneezing [Not Recovered/Not Resolved]
  - Pulmonary function test abnormal [Unknown]
  - Fear [Unknown]
  - Tendonitis [Recovered/Resolved]
  - Fall [Unknown]
  - Limb injury [Unknown]
  - Oxygen saturation decreased [Not Recovered/Not Resolved]
  - Malaise [Not Recovered/Not Resolved]
  - Gastric disorder [Recovered/Resolved]
  - Dysstasia [Recovered/Resolved]
  - Dyspnoea exertional [Not Recovered/Not Resolved]
  - Nasal congestion [Unknown]
  - Drug ineffective [Unknown]
  - Product dose omission issue [Not Recovered/Not Resolved]
  - Inappropriate schedule of product administration [Unknown]

NARRATIVE: CASE EVENT DATE: 20190101
